FAERS Safety Report 18061995 (Version 1)
Quarter: 2020Q3

REPORT INFORMATION
  Report Type: Spontaneous
  Country: GB (occurrence: GB)
  Receive Date: 20200723
  Receipt Date: 20200723
  Transmission Date: 20201103
  Serious: Yes (Other)
  Sender: FDA-Public Use
  Company Number: NVSC2020GB201673

PATIENT
  Age: 69 Year
  Sex: Male
  Weight: 78 kg

DRUGS (2)
  1. TAMSULOSIN [Suspect]
     Active Substance: TAMSULOSIN
     Indication: PRODUCT USED FOR UNKNOWN INDICATION
     Dosage: 400 UG, UNKNOWN, PROLONGED RELEASE
     Route: 065
     Dates: start: 20150224
  2. CONTIFLO [Suspect]
     Active Substance: TAMSULOSIN
     Indication: RENAL DISORDER
     Dosage: 400 UG, UNKNOWN, PROLONGED RELEASE
     Route: 048
     Dates: start: 202004, end: 20200609

REACTIONS (3)
  - Vertigo positional [Recovered/Resolved]
  - Nausea [Recovered/Resolved]
  - Dizziness [Recovered/Resolved]

NARRATIVE: CASE EVENT DATE: 20200513
